FAERS Safety Report 8788673 (Version 2)
Quarter: 2012Q4

REPORT INFORMATION
  Report Type: 
  Country: US (occurrence: US)
  Receive Date: 20120914
  Receipt Date: 20121008
  Transmission Date: 20130627
  Serious: Yes (Other)
  Sender: FDA-Public Use
  Company Number: PHEH2012US017688

PATIENT
  Sex: Female

DRUGS (10)
  1. DIOVAN HCT [Suspect]
  2. CLOPIDOGREL SULFATE [Suspect]
  3. CYMBALTA [Concomitant]
  4. COLCRYS [Concomitant]
  5. ASPIRIN [Concomitant]
  6. SINGULAIR [Concomitant]
  7. LIPITOR [Concomitant]
  8. ZYRTEC [Concomitant]
  9. NIASPAN [Concomitant]
  10. TRAMADOL [Concomitant]

REACTIONS (3)
  - Pneumonia [Unknown]
  - Blood sodium decreased [Unknown]
  - Contusion [Unknown]
